FAERS Safety Report 8773210 (Version 13)
Quarter: 2013Q4

REPORT INFORMATION
  Report Type: Report from Study
  Country: GB (occurrence: GB)
  Receive Date: 20120907
  Receipt Date: 20131004
  Transmission Date: 20140711
  Serious: Yes (Other)
  Sender: FDA-Public Use
  Company Number: GB-VERTEX PHARMACEUTICAL INC.-2012-019787

PATIENT
  Age: 48 Year
  Sex: Male

DRUGS (5)
  1. VX-950 (TELAPREVIR) [Suspect]
     Indication: HEPATITIS C
     Dosage: 750 MG, TID
     Route: 048
     Dates: start: 20120807, end: 20121101
  2. VX-950 (TELAPREVIR) [Suspect]
     Dosage: UNK
     Dates: end: 20121101
  3. RIBAVIRIN [Suspect]
     Indication: HEPATITIS C
     Dosage: UNK, BID
  4. PEG INTERFERON [Suspect]
     Indication: HEPATITIS C
     Dosage: DOSAGE FORM: INJECTION
     Route: 058
     Dates: start: 20120807
  5. LANSOPRAZOLE [Concomitant]

REACTIONS (31)
  - Headache [Not Recovered/Not Resolved]
  - Depressed mood [Not Recovered/Not Resolved]
  - Lethargy [Not Recovered/Not Resolved]
  - Arthralgia [Recovered/Resolved]
  - Rectal haemorrhage [Not Recovered/Not Resolved]
  - Vomiting [Recovered/Resolved]
  - Anaemia [Not Recovered/Not Resolved]
  - Anorectal discomfort [Not Recovered/Not Resolved]
  - Abdominal pain upper [Not Recovered/Not Resolved]
  - Asthenia [Not Recovered/Not Resolved]
  - Anxiety [Not Recovered/Not Resolved]
  - Disturbance in attention [Not Recovered/Not Resolved]
  - Dizziness [Recovered/Resolved]
  - Fatigue [Not Recovered/Not Resolved]
  - Headache [Recovered/Resolved]
  - Gastrointestinal disorder [Not Recovered/Not Resolved]
  - Hypotension [Not Recovered/Not Resolved]
  - Dyspnoea [Recovered/Resolved]
  - Impaired driving ability [Not Recovered/Not Resolved]
  - Insomnia [Not Recovered/Not Resolved]
  - Pain [Recovered/Resolved]
  - Pain in extremity [Not Recovered/Not Resolved]
  - Pain in extremity [Recovered/Resolved]
  - Photophobia [Not Recovered/Not Resolved]
  - Dysgeusia [Recovered/Resolved]
  - Nausea [Recovered/Resolved]
  - Abdominal pain [Not Recovered/Not Resolved]
  - Aggression [Not Recovered/Not Resolved]
  - Amnesia [Not Recovered/Not Resolved]
  - Anger [Not Recovered/Not Resolved]
  - Pollakiuria [Not Recovered/Not Resolved]
